FAERS Safety Report 21289461 (Version 2)
Quarter: 2022Q3

REPORT INFORMATION
  Report Type: Report from Study
  Country: CA (occurrence: CA)
  Receive Date: 20220902
  Receipt Date: 20220917
  Transmission Date: 20221027
  Serious: No
  Sender: FDA-Public Use
  Company Number: CA-VER-202200467

PATIENT
  Age: 77 Year
  Sex: Male

DRUGS (1)
  1. TRIPTORELIN PAMOATE [Suspect]
     Active Substance: TRIPTORELIN PAMOATE
     Indication: Prostate cancer
     Dosage: LATEST- ??18-AUG-2022 - 18-AUG-2022 (1 DAYS)
     Route: 030

REACTIONS (1)
  - Therapeutic response unexpected [Unknown]
